FAERS Safety Report 17639953 (Version 1)
Quarter: 2020Q2

REPORT INFORMATION
  Report Type: Spontaneous
  Country: CL (occurrence: CL)
  Receive Date: 20200407
  Receipt Date: 20200407
  Transmission Date: 20200713
  Serious: Yes (Hospitalization)
  Sender: FDA-Public Use
  Company Number: CL-MYLANLABS-2020M1035170

PATIENT
  Age: 44 Year
  Sex: Male

DRUGS (1)
  1. LEPONEX [Suspect]
     Active Substance: CLOZAPINE
     Indication: PRODUCT USED FOR UNKNOWN INDICATION
     Dosage: 400 MILLIGRAM, QD
     Route: 048

REACTIONS (1)
  - Hospitalisation [Recovered/Resolved]

NARRATIVE: CASE EVENT DATE: 20200326
